FAERS Safety Report 8166379-2 (Version None)
Quarter: 2012Q1

REPORT INFORMATION
  Report Type: 
  Country: None (occurrence: None)
  Receive Date: 20120227
  Receipt Date: 20110630
  Transmission Date: 20120608
  Serious: No
  Sender: FDA-Public Use
  Company Number: US-MYLANLABS-2011S1013620

PATIENT
  Age: 2 Decade
  Sex: Female

DRUGS (1)
  1. AMNESTEEM [Suspect]
     Indication: ACNE CYSTIC
     Route: 048
     Dates: start: 20110201, end: 20110601

REACTIONS (3)
  - GASTRIC DISORDER [None]
  - NAUSEA [None]
  - VOMITING [None]
